FAERS Safety Report 7490559-2 (Version None)
Quarter: 2011Q2

REPORT INFORMATION
  Report Type: 
  Country: None (occurrence: None)
  Receive Date: 20110517
  Receipt Date: 20110517
  Transmission Date: 20111010
  Serious: Yes (Other)
  Sender: FDA-Public Use
  Company Number: None

PATIENT
  Age: 52 Year
  Sex: Male
  Weight: 53.5244 kg

DRUGS (1)
  1. CARBOPLATIN [Suspect]
     Indication: LUNG NEOPLASM MALIGNANT
     Dosage: 480MG/Q3W/IVSS
     Route: 042
     Dates: start: 20110510

REACTIONS (5)
  - FEELING HOT [None]
  - HYPERHIDROSIS [None]
  - MICTURITION URGENCY [None]
  - NAUSEA [None]
  - VOMITING [None]
